FAERS Safety Report 17881337 (Version 6)
Quarter: 2020Q4

REPORT INFORMATION
  Report Type: Spontaneous
  Country: US (occurrence: US)
  Receive Date: 20200610
  Receipt Date: 20201217
  Transmission Date: 20210113
  Serious: Yes (Other)
  Sender: FDA-Public Use
  Company Number: US-PFIZER INC-2019107916

PATIENT
  Age: 22 Year
  Sex: Female
  Weight: 95 kg

DRUGS (12)
  1. CELEBREX [Suspect]
     Active Substance: CELECOXIB
     Indication: JUVENILE IDIOPATHIC ARTHRITIS
     Dosage: 200 MG, 2X/DAY
     Route: 048
     Dates: start: 2014
  2. CELEBREX [Suspect]
     Active Substance: CELECOXIB
     Indication: ARTHRITIS
     Dosage: 200 MG, 2X/DAY
     Route: 048
     Dates: start: 20190305
  3. CELEBREX [Suspect]
     Active Substance: CELECOXIB
     Indication: ANTIINFLAMMATORY THERAPY
  4. FERROUS GLUCONATE [Concomitant]
     Active Substance: FERROUS GLUCONATE
     Indication: IRON DEFICIENCY
     Dosage: 324 MG, DAILY (324MG BY MOUTH DAILY)
     Route: 048
  5. CELEBREX [Suspect]
     Active Substance: CELECOXIB
     Indication: MOBILITY DECREASED
  6. CELEBREX [Suspect]
     Active Substance: CELECOXIB
     Indication: JUVENILE IDIOPATHIC ARTHRITIS
     Dosage: 200 UNK
  7. HYDROXYCHLOROQUINE [Concomitant]
     Active Substance: HYDROXYCHLOROQUINE
     Indication: JUVENILE IDIOPATHIC ARTHRITIS
     Dosage: 200 MG, 2X/DAY (200MG TAKE ONE TWICE DAILY BY MOUTH)
     Route: 048
  8. ACTEMRA [Concomitant]
     Active Substance: TOCILIZUMAB
     Indication: RHEUMATOID ARTHRITIS
     Dosage: 162 MG, WEEKLY (162MG SYRINGE BY INJECTION WEEKLY)
  9. LEFLUNOMIDE. [Concomitant]
     Active Substance: LEFLUNOMIDE
     Indication: JUVENILE IDIOPATHIC ARTHRITIS
     Dosage: 20 MG, 1X/DAY (20MG TABLET ONCE DAILY AT NIGHT BY MOUTH)
     Route: 048
  10. AMITRIPTYLINE [Concomitant]
     Active Substance: AMITRIPTYLINE
     Indication: PAIN
     Dosage: 150 MG (150MG AT NIGHT BY MOUTH)
     Route: 048
  11. CELEBREX [Suspect]
     Active Substance: CELECOXIB
     Indication: GAIT DISTURBANCE
  12. LISINOPRIL. [Concomitant]
     Active Substance: LISINOPRIL
     Indication: HYPERTENSION
     Dosage: 10 MG, 1X/DAY (10MG TAKE ONCE DAILY BY MOUTH)
     Route: 048

REACTIONS (2)
  - Immunosuppression [Unknown]
  - Product dispensing error [Unknown]
